FAERS Safety Report 12854366 (Version 1)
Quarter: 2016Q4

REPORT INFORMATION
  Report Type: Spontaneous
  Country: US (occurrence: US)
  Receive Date: 20161017
  Receipt Date: 20161017
  Transmission Date: 20170207
  Serious: Yes (Life-Threatening, Hospitalization)
  Sender: FDA-Public Use
  Company Number: US-TEVA-702448USA

PATIENT
  Age: 52 Year
  Sex: Male
  Weight: 145.14 kg

DRUGS (10)
  1. HYDROMORPHONE HYDROCHLORIDE. [Concomitant]
     Active Substance: HYDROMORPHONE HYDROCHLORIDE
     Indication: ARTHRALGIA
     Dosage: AS NEEDED, EVERY 4 HOURS
     Dates: start: 20160207, end: 20160210
  2. ATIVAN [Concomitant]
     Active Substance: LORAZEPAM
     Indication: AGITATION
     Dosage: 2 DOSES
     Dates: start: 20160210, end: 20160210
  3. EPOETIN ALFA [Concomitant]
     Active Substance: ERYTHROPOIETIN
     Dosage: REGIMEN 2
     Dates: start: 20151226
  4. EPOETIN ALFA [Concomitant]
     Active Substance: ERYTHROPOIETIN
     Indication: NEPHROGENIC ANAEMIA
     Dosage: REGIMEN 1
     Dates: start: 20151218
  5. HALOPERIDOL. [Suspect]
     Active Substance: HALOPERIDOL
     Indication: AGITATION
     Dosage: ONCE
     Dates: start: 20160210, end: 20160210
  6. ALPRAZOLAM. [Suspect]
     Active Substance: ALPRAZOLAM
     Indication: AGITATION
     Dosage: AS NEEDED
     Route: 048
     Dates: start: 20160207, end: 20160209
  7. MORPHINE SULFATE. [Concomitant]
     Active Substance: MORPHINE SULFATE
     Indication: ARTHRALGIA
     Dosage: AS NEEDED
     Dates: start: 20160207, end: 20160209
  8. TRAMADOL. [Suspect]
     Active Substance: TRAMADOL
     Indication: ARTHRALGIA
     Dosage: AS NEEDED,
     Route: 048
     Dates: start: 20160208, end: 20160208
  9. HYDROCODONE BITARTRATE AND ACETAMINOPHEN [Concomitant]
     Active Substance: ACETAMINOPHEN\HYDROCODONE BITARTRATE
     Indication: ARTHRALGIA
     Dosage: 10/325 MG ONCE
     Route: 048
     Dates: start: 20160207, end: 20160207
  10. IRON [Concomitant]
     Active Substance: IRON

REACTIONS (3)
  - Respiratory arrest [Recovered/Resolved]
  - Tibia fracture [Recovered/Resolved]
  - Osteomyelitis [Not Recovered/Not Resolved]

NARRATIVE: CASE EVENT DATE: 20160210
